FAERS Safety Report 17273369 (Version 1)
Quarter: 2020Q1

REPORT INFORMATION
  Report Type: Spontaneous
  Country: GB (occurrence: GB)
  Receive Date: 20200115
  Receipt Date: 20200115
  Transmission Date: 20200409
  Serious: Yes (Hospitalization)
  Sender: FDA-Public Use
  Company Number: GB-ARRAY-2020-07161

PATIENT

DRUGS (2)
  1. MEKTOVI [Suspect]
     Active Substance: BINIMETINIB
     Indication: MALIGNANT MELANOMA
     Dosage: UNK UNK, UNKNOWN
     Route: 048
  2. BRAFTOVI [Suspect]
     Active Substance: ENCORAFENIB
     Indication: MALIGNANT MELANOMA
     Dosage: UNK UNK, UNKNOWN
     Route: 048

REACTIONS (8)
  - Acute kidney injury [Unknown]
  - Hypotension [Unknown]
  - Mucosal inflammation [Unknown]
  - Mobility decreased [Unknown]
  - Diarrhoea [Unknown]
  - Rash [Unknown]
  - Hypothermia [Unknown]
  - Decreased appetite [Unknown]
